FAERS Safety Report 20552816 (Version 1)
Quarter: 2022Q1

REPORT INFORMATION
  Report Type: Spontaneous
  Country: US (occurrence: None)
  Receive Date: 20220303
  Receipt Date: 20220303
  Transmission Date: 20220423
  Serious: Yes (Hospitalization, Disabling)
  Sender: FDA-Public Use
  Company Number: None

PATIENT
  Age: 25 Year
  Sex: Female
  Weight: 70 kg

DRUGS (1)
  1. MIRENA [Suspect]
     Active Substance: LEVONORGESTREL
     Dates: start: 20211129, end: 20220129

REACTIONS (12)
  - Dissociation [None]
  - Panic attack [None]
  - Vision blurred [None]
  - Tunnel vision [None]
  - Anxiety [None]
  - Depression [None]
  - Muscle spasms [None]
  - Syncope [None]
  - Dizziness [None]
  - Photophobia [None]
  - Libido decreased [None]
  - Complication of device insertion [None]

NARRATIVE: CASE EVENT DATE: 20211228
